FAERS Safety Report 6619485-5 (Version None)
Quarter: 2010Q1

REPORT INFORMATION
  Report Type: 
  Country: None (occurrence: None)
  Receive Date: 20100309
  Receipt Date: 20100303
  Transmission Date: 20100710
  Serious: Yes (Death, Hospitalization)
  Sender: FDA-Public Use
  Company Number: TR-ELI_LILLY_AND_COMPANY-TR201002000176

PATIENT
  Sex: Female
  Weight: 65 kg

DRUGS (18)
  1. PEMETREXED [Suspect]
     Indication: NON-SMALL CELL LUNG CANCER
     Dosage: 500 MG/M2, ON D1 EVERY 21 DAYS
     Route: 042
     Dates: start: 20090909, end: 20091112
  2. CISPLATIN [Suspect]
     Indication: NON-SMALL CELL LUNG CANCER
     Dosage: 75 MG/M2, ON D1 EVERY 21 DAYS
     Route: 042
     Dates: start: 20090909, end: 20091112
  3. PEMETREXED [Suspect]
     Dosage: UNK, ON D1 EVERY 21 DAYS
     Route: 042
     Dates: start: 20091223
  4. FOLIC ACID [Concomitant]
     Indication: PROPHYLAXIS
     Dates: start: 20090904
  5. VIT B12 [Concomitant]
     Indication: PROPHYLAXIS
     Dates: start: 20090904
  6. DEXAMETHASONE [Concomitant]
     Indication: PROPHYLAXIS
     Dates: start: 20090908
  7. PIRACETAM [Concomitant]
     Dates: start: 20040101
  8. PENTOXIFYLLINE [Concomitant]
     Dates: start: 20040101
  9. NEBIVOLOL [Concomitant]
     Dates: start: 20040101
  10. RAMIPRIL [Concomitant]
     Dates: start: 20040101
  11. DONEPEZIL HCL [Concomitant]
     Dates: start: 20050101
  12. ALENDRONAT [Concomitant]
     Dates: start: 20060101
  13. CALCIMAX D3 /01606701/ [Concomitant]
     Dates: start: 20060101
  14. MIRTAZAPINE [Concomitant]
     Dates: start: 20090904
  15. ALPRAZOLAM [Concomitant]
     Dates: start: 20090904
  16. GERALGINE [Concomitant]
     Dates: start: 20090929
  17. METHYLPREDNISOLONE [Concomitant]
     Dates: start: 20091209
  18. LANSOPRAZOLE [Concomitant]
     Dates: start: 20091209

REACTIONS (2)
  - FEBRILE NEUTROPENIA [None]
  - PNEUMONIA [None]
